FAERS Safety Report 14985746 (Version 1)
Quarter: 2018Q2

REPORT INFORMATION
  Report Type: Spontaneous
  Country: IT (occurrence: IT)
  Receive Date: 20180607
  Receipt Date: 20180607
  Transmission Date: 20180711
  Serious: Yes (Hospitalization, Other)
  Sender: FDA-Public Use
  Company Number: IT-MYLANLABS-2018M1037598

PATIENT
  Age: 39 Year
  Sex: Male

DRUGS (3)
  1. XANAX [Suspect]
     Active Substance: ALPRAZOLAM
     Indication: PRODUCT USED FOR UNKNOWN INDICATION
     Dosage: 4 MG, TOTAL
     Route: 048
     Dates: start: 20180219, end: 20180219
  2. WELLBUTRIN [Suspect]
     Active Substance: BUPROPION HYDROCHLORIDE
     Indication: DEPRESSION
     Dosage: 3000 MG, TOTAL
     Route: 048
     Dates: start: 20180219, end: 20180219
  3. SERTRALINE [Suspect]
     Active Substance: SERTRALINE HYDROCHLORIDE
     Indication: DEPRESSION
     Dosage: 2000 MG, TOTAL
     Route: 048
     Dates: start: 20180219, end: 20180219

REACTIONS (3)
  - Intentional self-injury [Recovered/Resolved]
  - Therapy change [Recovered/Resolved]
  - Bradyphrenia [Recovered/Resolved]

NARRATIVE: CASE EVENT DATE: 20180219
